FAERS Safety Report 17161560 (Version 9)
Quarter: 2020Q2

REPORT INFORMATION
  Report Type: Report from Study
  Country: None (occurrence: IL)
  Receive Date: 20191216
  Receipt Date: 20200407
  Transmission Date: 20200713
  Serious: Yes (Death, Other)
  Sender: FDA-Public Use
  Company Number: IL-ABBVIE-19K-082-3190296-00

PATIENT
  Age: 88 Year
  Sex: Female
  Weight: 58.5 kg

DRUGS (31)
  1. PLATELETS PACK [Concomitant]
     Indication: THROMBOCYTOPENIA
     Dates: start: 20191121, end: 20191202
  2. ALDACTONE [Concomitant]
     Active Substance: SPIRONOLACTONE
     Indication: ASCITES
     Dates: start: 20191121, end: 20191129
  3. FORTUM [Concomitant]
     Active Substance: CEFTAZIDIME
     Indication: PYREXIA
  4. VENCLEXTA [Suspect]
     Active Substance: VENETOCLAX
     Indication: ACUTE MYELOID LEUKAEMIA
     Dosage: RAMP UP
     Route: 048
     Dates: start: 20191118, end: 20191118
  5. AZACITIDINE. [Suspect]
     Active Substance: AZACITIDINE
     Indication: PRODUCT USED FOR UNKNOWN INDICATION
     Dosage: CYCLE 1
     Route: 058
     Dates: start: 20191118, end: 20191124
  6. MEROPENEM. [Concomitant]
     Active Substance: MEROPENEM
     Indication: PYREXIA
     Dates: start: 20191120, end: 20191201
  7. ALDACTONE [Concomitant]
     Active Substance: SPIRONOLACTONE
     Dates: start: 20191218, end: 20191230
  8. ALLORIL [Concomitant]
     Active Substance: ALLOPURINOL
     Indication: PROPHYLAXIS
     Dates: start: 20191117, end: 20191214
  9. TARGIN [Concomitant]
     Active Substance: NALOXONE HYDROCHLORIDE\OXYCODONE HYDROCHLORIDE
     Indication: ASCITES
  10. AMIKACIN. [Concomitant]
     Active Substance: AMIKACIN
     Indication: INFECTION PROPHYLAXIS
     Dates: start: 20191230, end: 20191230
  11. VENCLEXTA [Suspect]
     Active Substance: VENETOCLAX
     Route: 048
     Dates: start: 202001
  12. HEXAKAPRON [Concomitant]
     Active Substance: TRANEXAMIC ACID
     Indication: THROMBOCYTOPENIA
     Dates: start: 20191118, end: 20191118
  13. MEROPENEM. [Concomitant]
     Active Substance: MEROPENEM
     Dates: start: 20191205, end: 20191223
  14. CIPRODEX [Concomitant]
     Active Substance: CIPROFLOXACIN HYDROCHLORIDE\DEXAMETHASONE
     Indication: PROPHYLAXIS
     Dates: start: 20191204, end: 20191205
  15. FUSID [Concomitant]
     Indication: OEDEMA PERIPHERAL
  16. PARACETAMOL [Concomitant]
     Active Substance: ACETAMINOPHEN
     Indication: PROPHYLAXIS
     Dates: start: 20200103, end: 20200112
  17. OPTALGIN [Concomitant]
     Active Substance: METAMIZOLE
     Indication: ANTIPYRESIS
     Dates: start: 20200104, end: 20200112
  18. VENCLEXTA [Suspect]
     Active Substance: VENETOCLAX
     Route: 048
     Dates: start: 20191120, end: 20191123
  19. HEXAKAPRON [Concomitant]
     Active Substance: TRANEXAMIC ACID
     Dates: start: 20191124, end: 20191205
  20. BLOOD PACK [Concomitant]
     Indication: ANAEMIA
     Dates: start: 20191121, end: 20191121
  21. CIPRODEX [Concomitant]
     Active Substance: CIPROFLOXACIN HYDROCHLORIDE\DEXAMETHASONE
     Dates: start: 20191223, end: 20191226
  22. PRAMIN [Concomitant]
     Indication: PROPHYLAXIS OF NAUSEA AND VOMITING
     Dates: start: 20191121, end: 20191230
  23. ZOFRAN [Concomitant]
     Active Substance: ONDANSETRON HYDROCHLORIDE
     Indication: PRODUCT USED FOR UNKNOWN INDICATION
     Dates: start: 20191212, end: 20191220
  24. VENCLEXTA [Suspect]
     Active Substance: VENETOCLAX
     Route: 048
     Dates: start: 20191124, end: 20200101
  25. CEFTAZIDIME. [Concomitant]
     Active Substance: CEFTAZIDIME
     Indication: PYREXIA
     Dates: start: 20191117, end: 20191120
  26. NAXYN [Concomitant]
     Active Substance: NAPROXEN
     Indication: ANTIPYRESIS
     Dates: start: 20200104, end: 20200110
  27. AZACITIDINE. [Suspect]
     Active Substance: AZACITIDINE
     Dosage: CYCLE 2
     Route: 058
     Dates: start: 20191216, end: 20191222
  28. BLOOD PACK [Concomitant]
     Dates: start: 20191125, end: 20191126
  29. VENCLEXTA [Suspect]
     Active Substance: VENETOCLAX
     Dosage: RAMP UP
     Route: 048
     Dates: start: 20191119, end: 20191119
  30. AKYNZEO [Concomitant]
     Active Substance: NETUPITANT\PALONOSETRON HYDROCHLORIDE
     Indication: NAUSEA
     Dates: start: 20191118, end: 20191118
  31. ALDACTONE [Concomitant]
     Active Substance: SPIRONOLACTONE
     Indication: ASCITES
     Dates: start: 20191202, end: 20191216

REACTIONS (44)
  - Febrile neutropenia [Recovered/Resolved]
  - Tremor [Not Recovered/Not Resolved]
  - Dysuria [Recovered/Resolved]
  - Febrile neutropenia [Recovered/Resolved with Sequelae]
  - Febrile neutropenia [Not Recovered/Not Resolved]
  - Hypoxia [Recovered/Resolved]
  - Weight decreased [Recovered/Resolved]
  - Nausea [Recovered/Resolved with Sequelae]
  - Hypokalaemia [Recovered/Resolved]
  - Dyskinesia [Unknown]
  - Delirium [Unknown]
  - Hypokalaemia [Recovered/Resolved with Sequelae]
  - Injection site reaction [Recovered/Resolved]
  - Nausea [Recovered/Resolved]
  - Neutrophil count decreased [Recovered/Resolved with Sequelae]
  - Haematoma [Recovered/Resolved]
  - Platelet count decreased [Recovered/Resolved]
  - Blood creatinine increased [Recovered/Resolved with Sequelae]
  - Fatigue [Not Recovered/Not Resolved]
  - Depression [Not Recovered/Not Resolved]
  - Dyspnoea [Unknown]
  - Hypokalaemia [Recovered/Resolved with Sequelae]
  - Platelet count decreased [Recovered/Resolved]
  - Neutrophil count decreased [Recovered/Resolved with Sequelae]
  - Neutrophil count decreased [Recovered/Resolved with Sequelae]
  - Hypokalaemia [Recovered/Resolved]
  - Leukopenia [Not Recovered/Not Resolved]
  - Peritonitis [Not Recovered/Not Resolved]
  - Febrile neutropenia [Recovered/Resolved]
  - Platelet count decreased [Recovered/Resolved]
  - Fatigue [Recovered/Resolved]
  - Cyanosis [Unknown]
  - Synovitis [Recovered/Resolved with Sequelae]
  - Febrile neutropenia [Recovered/Resolved]
  - Neutrophil count decreased [Recovered/Resolved]
  - Fatigue [Recovered/Resolved]
  - Blood creatinine increased [Recovered/Resolved]
  - Neutrophil count decreased [Not Recovered/Not Resolved]
  - Confusional state [Not Recovered/Not Resolved]
  - Ecchymosis [Unknown]
  - Acute myeloid leukaemia [Fatal]
  - Pyrexia [Recovered/Resolved]
  - Constipation [Not Recovered/Not Resolved]
  - Oral candidiasis [Unknown]

NARRATIVE: CASE EVENT DATE: 20191118
